FAERS Safety Report 19466434 (Version 1)
Quarter: 2021Q2

REPORT INFORMATION
  Report Type: Other
  Country: NO (occurrence: NO)
  Receive Date: 20210628
  Receipt Date: 20210628
  Transmission Date: 20210717
  Serious: Yes (Hospitalization)
  Sender: FDA-Public Use
  Company Number: NO-CELLTRION INC.-2021NO008442

PATIENT

DRUGS (3)
  1. MEZAVANT [Concomitant]
     Active Substance: MESALAMINE
     Indication: COLITIS ULCERATIVE
  2. INFLIXIMAB (UNKNOWN) [Suspect]
     Active Substance: INFLIXIMAB
     Indication: COLITIS ULCERATIVE
     Dosage: 400 MILLIGRAM, INITIALLY 400 MG (DOSE INTERVAL NOT STATED). FROM SEPTEMBER 2020, DOSE INCREASED TO 8
     Dates: start: 202005, end: 20201027
  3. PREDNISOLONE. [Concomitant]
     Active Substance: PREDNISOLONE
     Indication: COLITIS ULCERATIVE
     Dosage: UNK
     Route: 048
     Dates: end: 2020

REACTIONS (8)
  - Mononeuropathy multiplex [Not Recovered/Not Resolved]
  - Influenza like illness [Recovered/Resolved]
  - Cough [Recovered/Resolved]
  - Off label use [Unknown]
  - Dyspnoea exertional [Recovering/Resolving]
  - General physical health deterioration [Recovering/Resolving]
  - Lung infiltration [Recovering/Resolving]
  - Overdose [Unknown]

NARRATIVE: CASE EVENT DATE: 202010
